FAERS Safety Report 9869695 (Version 2)
Quarter: 2014Q1

REPORT INFORMATION
  Report Type: Spontaneous
  Country: FR (occurrence: None)
  Receive Date: 20140131
  Receipt Date: 20140218
  Transmission Date: 20141002
  Serious: Yes (Other)
  Sender: FDA-Public Use
  Company Number: KAD201401-000114

PATIENT
  Age: 65 Year
  Sex: Female

DRUGS (14)
  1. RIBAVIRIN [Suspect]
     Indication: CHRONIC HEPATITIS C
     Route: 048
     Dates: start: 20131202, end: 20140117
  2. BMS 914143 [Suspect]
     Indication: CHRONIC HEPATITIS C
     Route: 058
     Dates: start: 20131202, end: 20140117
  3. PEGINTERFERON ALFA-2A [Suspect]
     Indication: CHRONIC HEPATITIS C
     Dosage: THRICE DAILY
     Route: 058
     Dates: start: 20131202, end: 20140117
  4. TELAPREVIR [Suspect]
     Indication: CHRONIC HEPATITIS C
     Route: 048
     Dates: start: 20131202, end: 20140117
  5. IXPRIM (TRAMADOL HYDROCHLORIDE, ACETAMINOPHEN) [Concomitant]
  6. DICLOFENAC SODIUM (DICLOFENAC SODIUM) [Concomitant]
  7. INNOVAR (DROPERIDOL, FENTANYL CITRATE) [Concomitant]
  8. ESOMEPRAZOLE [Concomitant]
  9. ESTRADIOL [Concomitant]
  10. VALSARTAN [Concomitant]
  11. DOMPERIDONE [Concomitant]
  12. BECLOMETHASONE DIPROPIONATE + FORMOTEROL FUMARATE [Concomitant]
  13. CALCIFEDIOL [Concomitant]
  14. PROGESTERONE [Concomitant]

REACTIONS (7)
  - Blood creatinine increased [None]
  - Lipase increased [None]
  - Anaemia [None]
  - Asthenia [None]
  - Nausea [None]
  - Vomiting [None]
  - Amylase increased [None]
